FAERS Safety Report 16264584 (Version 5)
Quarter: 2019Q3

REPORT INFORMATION
  Report Type: Spontaneous
  Country: US (occurrence: US)
  Receive Date: 20190502
  Receipt Date: 20190815
  Transmission Date: 20191004
  Serious: Yes (Hospitalization)
  Sender: FDA-Public Use
  Company Number: US-PFIZER INC-2019181366

PATIENT
  Age: 57 Year
  Sex: Female
  Weight: 63.5 kg

DRUGS (25)
  1. DIFLUCAN [Concomitant]
     Active Substance: FLUCONAZOLE
     Dosage: UNK)(TAKE 1 TABLET BY ORAL ROUTE ONCE 1 TAB NOW AND RPT IN 4 DAYS)
     Route: 048
     Dates: start: 20190606
  2. ANUSOL HC [Concomitant]
     Active Substance: HYDROCORTISONE
     Dosage: UNK(APPLY BY TOPICAL ROUTE 2- 4 TIMES EVERY DAY A THIN LAYER TO THE AFFECTED)
     Route: 061
     Dates: end: 20190606
  3. PREMPRO [Suspect]
     Active Substance: ESTROGENS, CONJUGATED\MEDROXYPROGESTERONE ACETATE
     Indication: HORMONE LEVEL ABNORMAL
     Dosage: UNK (ESTROGENS CONJUGATED: 0.625MG, MEDROXYPROGESTERONE ACETATE: 2.5MG)
     Dates: start: 200910
  4. AZELASTINE. [Concomitant]
     Active Substance: AZELASTINE HYDROCHLORIDE
     Dosage: UNK UNK, AS NEEDED(USE 2 SPRAYS IN EACH NOSTRIL TWICE DAILY AS NEEDED)
     Dates: start: 20180408
  5. GABAPENTIN. [Concomitant]
     Active Substance: GABAPENTIN
     Dosage: 300 MG, 2X/DAY
     Route: 048
     Dates: start: 20190308
  6. LUNESTA [Concomitant]
     Active Substance: ESZOPICLONE
     Indication: SLEEP DISORDER
     Dosage: 3 MG, AS NEEDED( TAKE 1 TABLET BY MOUTH AT BEDTIME AS NEEDED FOR SLEEP)
     Route: 048
     Dates: start: 20190331
  7. PHENTERMINE. [Concomitant]
     Active Substance: PHENTERMINE
     Dosage: UNK UNK, DAILY(TAKE 1 TABLET BY MOUTH EVERY DAY BEFORE BREAKFAST)
     Route: 048
     Dates: start: 20190603
  8. PROVENTIL HFA [Concomitant]
     Active Substance: ALBUTEROL SULFATE
     Dosage: UNK UNK, AS NEEDED(INHALE 2 PUFF BY INHALATION ROUTE EVERY 4 -6 HOURS AS NEEDED)
     Dates: start: 20190308
  9. FLUTICASONE. [Concomitant]
     Active Substance: FLUTICASONE
     Dosage: UNK UNK, DAILY(INHALE 2 SPRAY BY INTRANASAL ROUTE EVERY DAY IN EACH NOSTRIL)
     Route: 055
     Dates: start: 20140810
  10. LINZESS [Concomitant]
     Active Substance: LINACLOTIDE
     Dosage: 72 UG, 1X/DAY(TAKE 1 CAPSULE EVERY MORNING BEFORE YOUR FIRST MEAL)
     Dates: end: 20190606
  11. MACROBID [Concomitant]
     Active Substance: NITROFURANTOIN\NITROFURANTOIN MONOHYDRATE
     Dosage: 100 MG, 2X/DAY( TAKE 1 CAPSULE BY ORAL ROUTE EVERY 12 HOURS WITH FOOD)
     Route: 048
     Dates: start: 20190606
  12. NARCAN [Concomitant]
     Active Substance: NALOXONE HYDROCHLORIDE
     Dosage: 0.1 ML, AS NEEDED(SPRAY 0.1 MILLILITER BY INTRANASAL ROUTE IN 1 NOSTRIL MAY REPEAT DOSE EVERY 2-3 M)
     Route: 048
     Dates: start: 20190420
  13. TAZORAC [Concomitant]
     Active Substance: TAZAROTENE
     Dosage: UNK(APPLY BY TOPICAL ROUTE EVERY NIGHT TO THE AFFECTED AREA(S))
     Route: 061
     Dates: start: 20190308
  14. PREMPRO [Suspect]
     Active Substance: ESTROGENS, CONJUGATED\MEDROXYPROGESTERONE ACETATE
     Dosage: 1 DF, DAILY
     Route: 048
     Dates: start: 20190603, end: 20190606
  15. EPIPEN [Concomitant]
     Active Substance: EPINEPHRINE
     Indication: ANAPHYLACTIC REACTION
     Dosage: 0.3 ML, AS NEEDED(INJECT 0.3 MILLILITER BY INTRAMUSCULAR ROUTE ONCE AS NEEDED FOR ANAPHYLAXIS)
     Route: 030
     Dates: start: 20170308
  16. OXYCODONE/PARACETAMOL [Concomitant]
     Indication: PAIN
     Dosage: 1 DF, AS NEEDED(1 TABLET FIVE X DAILY AS NEEDED FOR PAIN)
     Dates: start: 20190429
  17. PREMPRO [Suspect]
     Active Substance: ESTROGENS, CONJUGATED\MEDROXYPROGESTERONE ACETATE
     Indication: HOT FLUSH
     Dosage: 1 DF, ONCE DAILY (ESTROGENS CONJUGATED: 0.625MG, MEDROXYPROGESTERONE ACETATE: 2.5MG, AT NIGHT)
     Route: 048
     Dates: start: 201904
  18. PREMPRO [Suspect]
     Active Substance: ESTROGENS, CONJUGATED\MEDROXYPROGESTERONE ACETATE
     Dosage: 1 DF, DAILY
     Dates: start: 20190501
  19. PREMARIN [Concomitant]
     Active Substance: ESTROGENS, CONJUGATED
     Dosage: 0.325 MG, 2X/WEEK
     Dates: start: 2017
  20. TRAZODONE [Concomitant]
     Active Substance: TRAZODONE HYDROCHLORIDE
     Dosage: 50 MG, 1X/DAY(TAKE 1 TABLET BY MOUTH AT BEDTIME)
     Route: 048
     Dates: start: 20180925
  21. OMEPRAZOLE. [Concomitant]
     Active Substance: OMEPRAZOLE
     Dosage: 40 MG, 2X/DAY(TAKE 1 CAPSULE BY ORAL ROUTE 2 TIMES EVERY DAY BEFORE A MEAL)
     Route: 048
     Dates: start: 20190331
  22. SINGULAIR [Concomitant]
     Active Substance: MONTELUKAST SODIUM
     Dosage: 10 MG, DAILY
     Route: 048
     Dates: start: 20190313
  23. BENADRYL ALLERGY [Concomitant]
     Active Substance: DIPHENHYDRAMINE HYDROCHLORIDE
     Dosage: 1 MG, AS NEEDED
     Dates: start: 20170527
  24. DIAZEPAM. [Concomitant]
     Active Substance: DIAZEPAM
     Dosage: UNK UNK, AS NEEDED(TAKE 1 TABLET TWICE A DAY AS NEEDED)
     Dates: start: 20190223
  25. FUROSEMIDE. [Concomitant]
     Active Substance: FUROSEMIDE
     Dosage: 40 MG, DAILY
     Route: 048
     Dates: start: 20190313

REACTIONS (17)
  - Dizziness [Recovered/Resolved]
  - Chills [Recovered/Resolved]
  - Vulvovaginal swelling [Unknown]
  - Weight decreased [Recovered/Resolved]
  - Hot flush [Recovered/Resolved]
  - Vulvovaginal discomfort [Recovering/Resolving]
  - Vulvovaginal burning sensation [Unknown]
  - Vaginal discharge [Recovering/Resolving]
  - Urinary tract infection [Not Recovered/Not Resolved]
  - Pollakiuria [Unknown]
  - Back pain [Unknown]
  - Malaise [Recovered/Resolved]
  - Vulvovaginal pruritus [Recovering/Resolving]
  - Feeling hot [Recovered/Resolved]
  - Nausea [Recovered/Resolved]
  - Dysuria [Unknown]
  - Fatigue [Unknown]

NARRATIVE: CASE EVENT DATE: 20190315
